FAERS Safety Report 14940306 (Version 1)
Quarter: 2018Q2

REPORT INFORMATION
  Report Type: Spontaneous
  Country: ES (occurrence: ES)
  Receive Date: 20180525
  Receipt Date: 20180525
  Transmission Date: 20180711
  Serious: Yes (Other)
  Sender: FDA-Public Use
  Company Number: ES-SA-2018SA138857

PATIENT
  Sex: Female

DRUGS (3)
  1. HUMALOG [Concomitant]
     Active Substance: INSULIN LISPRO
     Indication: TYPE 2 DIABETES MELLITUS
     Route: 058
  2. JARDIANCE [Suspect]
     Active Substance: EMPAGLIFLOZIN
     Indication: TYPE 2 DIABETES MELLITUS
     Dosage: 1 UNK, QD
     Route: 048
  3. TOUJEO [Suspect]
     Active Substance: INSULIN GLARGINE
     Dosage: 76 IU, QD
     Route: 058
     Dates: start: 2016

REACTIONS (2)
  - Pruritus [Not Recovered/Not Resolved]
  - Oropharyngeal pain [Recovered/Resolved]

NARRATIVE: CASE EVENT DATE: 2016
